FAERS Safety Report 6134467-8 (Version None)
Quarter: 2009Q1

REPORT INFORMATION
  Report Type: 
  Country: None (occurrence: None)
  Receive Date: 20090327
  Receipt Date: 20090323
  Transmission Date: 20090719
  Serious: Yes (Life-Threatening, Hospitalization)
  Sender: FDA-Public Use
  Company Number: BR-WYE-H08670609

PATIENT
  Sex: Male

DRUGS (1)
  1. PRISTIQ [Suspect]
     Indication: DEPRESSION
     Route: 048

REACTIONS (2)
  - MEDICATION RESIDUE [None]
  - SUICIDE ATTEMPT [None]
